FAERS Safety Report 6508337-7 (Version None)
Quarter: 2009Q4

REPORT INFORMATION
  Report Type: 
  Country: None (occurrence: None)
  Receive Date: 20091221
  Receipt Date: 20081111
  Transmission Date: 20100525
  Serious: No
  Sender: FDA-Public Use
  Company Number: US-ASTRAZENECA-2008UW25232

PATIENT
  Age: 77 Year
  Sex: Female

DRUGS (7)
  1. CRESTOR [Suspect]
     Indication: HYPERCHOLESTEROLAEMIA
     Dosage: 5 MG
     Route: 048
     Dates: start: 20081107
  2. SYNTHROID [Concomitant]
  3. INDERAL LA [Concomitant]
  4. DIOVAN [Concomitant]
  5. NORVASC [Concomitant]
  6. ALLOPURINOL [Concomitant]
  7. METFORMIN HCL [Concomitant]

REACTIONS (3)
  - BLOOD PRESSURE INCREASED [None]
  - HEADACHE [None]
  - PALPITATIONS [None]
